FAERS Safety Report 22324900 (Version 2)
Quarter: 2023Q2

REPORT INFORMATION
  Report Type: Spontaneous
  Country: US (occurrence: US)
  Receive Date: 20230516
  Receipt Date: 20230522
  Transmission Date: 20230722
  Serious: No
  Sender: FDA-Public Use
  Company Number: US-SANOFI-01613190

PATIENT
  Age: 49 Year
  Sex: Male
  Weight: 97.522 kg

DRUGS (1)
  1. DUPIXENT [Suspect]
     Active Substance: DUPILUMAB
     Indication: Dermatitis atopic
     Dosage: 300 MG QOW
     Route: 058
     Dates: start: 2020

REACTIONS (3)
  - Injection site pain [Unknown]
  - Eczema [Unknown]
  - Injury associated with device [Unknown]
